FAERS Safety Report 16762747 (Version 2)
Quarter: 2020Q2

REPORT INFORMATION
  Report Type: Spontaneous
  Country: GB (occurrence: GB)
  Receive Date: 20190901
  Receipt Date: 20200429
  Transmission Date: 20200713
  Serious: Yes (Other)
  Sender: FDA-Public Use
  Company Number: GB-STRIDES ARCOLAB LIMITED-2019SP008175

PATIENT
  Age: 40 Year
  Sex: Female

DRUGS (2)
  1. CETIRIZINE [Suspect]
     Active Substance: CETIRIZINE HYDROCHLORIDE
     Indication: ORAL ALLERGY SYNDROME
     Dosage: 10 MILLIGRAM
     Route: 065
  2. CETIRIZINE [Suspect]
     Active Substance: CETIRIZINE HYDROCHLORIDE
     Indication: FOOD ALLERGY

REACTIONS (6)
  - Rash maculo-papular [Recovered/Resolved]
  - Pustule [Unknown]
  - Type IV hypersensitivity reaction [Unknown]
  - Acute generalised exanthematous pustulosis [Unknown]
  - Erythema [Unknown]
  - Skin exfoliation [Unknown]
